FAERS Safety Report 4587163-2 (Version None)
Quarter: 2005Q1

REPORT INFORMATION
  Report Type: 
  Country: None (occurrence: None)
  Receive Date: 20050218
  Receipt Date: 20050207
  Transmission Date: 20050727
  Serious: Yes (Congenital Anomaly)
  Sender: FDA-Public Use
  Company Number: GB-JNJFOC-20050106739

PATIENT
  Sex: Female

DRUGS (6)
  1. SPORANOX [Suspect]
     Indication: DRUG USE FOR UNKNOWN INDICATION
     Route: 015
  2. AMOXICILLIN [Concomitant]
     Route: 015
  3. GAVISCON [Concomitant]
     Route: 015
  4. GAVISCON [Concomitant]
     Route: 015
  5. LACTULOSE [Concomitant]
     Route: 015
  6. IDROLAX [Concomitant]
     Indication: CONSTIPATION
     Route: 015

REACTIONS (2)
  - DRUG EXPOSURE DURING PREGNANCY [None]
  - TALIPES [None]
